FAERS Safety Report 4311254-4 (Version None)
Quarter: 2004Q1

REPORT INFORMATION
  Report Type: 
  Country: None (occurrence: None)
  Receive Date: 20040304
  Receipt Date: 20040218
  Transmission Date: 20041129
  Serious: Yes (Other)
  Sender: FDA-Public Use
  Company Number: WAES 0402USA01597

PATIENT
  Age: 79 Year
  Sex: Male

DRUGS (6)
  1. AMINO ACIDS (UNSPECIFIED) AND CARBOHYDRATES (UNSPECIFIED) AND ELECTROL [Concomitant]
  2. AMINOPHYLLINE [Concomitant]
  3. PEPCID [Suspect]
     Route: 051
  4. MEROPENEM [Concomitant]
  5. XANBON [Concomitant]
  6. PREDONINE [Concomitant]

REACTIONS (1)
  - RHABDOMYOLYSIS [None]
